FAERS Safety Report 4823261-3 (Version None)
Quarter: 2005Q4

REPORT INFORMATION
  Report Type: 
  Country: None (occurrence: None)
  Receive Date: 20051107
  Receipt Date: 20051027
  Transmission Date: 20060501
  Serious: Yes (Other)
  Sender: FDA-Public Use
  Company Number: 2005-10-1659

PATIENT

DRUGS (2)
  1. CLARITIN [Suspect]
     Indication: ECZEMA
     Dosage: ORAL
     Route: 048
  2. CLARITIN [Suspect]
     Indication: PRURITUS
     Dosage: ORAL
     Route: 048

REACTIONS (2)
  - BLOOD CREATINE PHOSPHOKINASE INCREASED [None]
  - PARAESTHESIA [None]
